FAERS Safety Report 11056554 (Version 2)
Quarter: 2015Q2

REPORT INFORMATION
  Report Type: Spontaneous
  Country: US (occurrence: US)
  Receive Date: 20150422
  Receipt Date: 20150524
  Transmission Date: 20150821
  Serious: Yes (Life-Threatening, Disabling, Other)
  Sender: FDA-Public Use
  Company Number: US-JNJFOC-20150404151

PATIENT
  Age: 57 Year
  Sex: Male
  Weight: 104.33 kg

DRUGS (1)
  1. INVOKANA [Suspect]
     Active Substance: CANAGLIFLOZIN
     Indication: TYPE 2 DIABETES MELLITUS
     Route: 048
     Dates: start: 20140101, end: 20141231

REACTIONS (3)
  - Fungal infection [Unknown]
  - Weight decreased [Unknown]
  - Renal impairment [Unknown]
